FAERS Safety Report 15398107 (Version 1)
Quarter: 2018Q3

REPORT INFORMATION
  Report Type: Spontaneous
  Country: JP (occurrence: JP)
  Receive Date: 20180918
  Receipt Date: 20180918
  Transmission Date: 20181010
  Serious: Yes (Other)
  Sender: FDA-Public Use
  Company Number: JP-PFIZER INC-2018222904

PATIENT
  Age: 53 Year
  Sex: Male

DRUGS (11)
  1. LYRICA [Suspect]
     Active Substance: PREGABALIN
     Dosage: 75 MG, 3X/DAY
     Route: 048
     Dates: start: 20180129, end: 20180401
  2. LYRICA [Suspect]
     Active Substance: PREGABALIN
     Dosage: 50 MG, 2X/DAY
     Route: 048
     Dates: start: 20180514
  3. LORCAM [Suspect]
     Active Substance: LORNOXICAM
     Indication: PAIN IN EXTREMITY
     Dosage: 4 MG, 3X/DAY
     Route: 048
     Dates: start: 20180326
  4. ALFADEX [Concomitant]
     Active Substance: ALFADEX
     Indication: PAIN IN EXTREMITY
     Dosage: 5 MG, 3X/DAY
     Route: 048
     Dates: start: 20180115
  5. LYRICA [Suspect]
     Active Substance: PREGABALIN
     Dosage: 75 MG, 3X/DAY
     Route: 048
     Dates: start: 20180418, end: 20180430
  6. EPERISONE [Suspect]
     Active Substance: EPERISONE
     Indication: PAIN IN EXTREMITY
     Dosage: 50 MG, 3X/DAY
     Route: 048
     Dates: start: 20180326
  7. LYRICA [Suspect]
     Active Substance: PREGABALIN
     Indication: PAIN IN EXTREMITY
     Dosage: 50 MG, 2X/DAY
     Route: 048
     Dates: start: 20171117, end: 20171217
  8. LYRICA [Suspect]
     Active Substance: PREGABALIN
     Dosage: 75 MG, 2X/DAY
     Route: 048
     Dates: start: 20180501, end: 20180513
  9. LYRICA [Suspect]
     Active Substance: PREGABALIN
     Indication: PAIN IN EXTREMITY
     Dosage: 75 MG, 2X/DAY
     Route: 048
     Dates: start: 20171016, end: 20171116
  10. LYRICA [Suspect]
     Active Substance: PREGABALIN
     Dosage: 75 MG, 2X/DAY
     Route: 048
     Dates: start: 20171218, end: 20180128
  11. LYRICA [Suspect]
     Active Substance: PREGABALIN
     Dosage: 75 MG, 2X/DAY
     Route: 048
     Dates: start: 20180402, end: 20180417

REACTIONS (3)
  - Cervical spinal stenosis [Unknown]
  - Lumbar spinal stenosis [Unknown]
  - Lip ulceration [Unknown]

NARRATIVE: CASE EVENT DATE: 20180115
